FAERS Safety Report 5145004-9 (Version None)
Quarter: 2006Q4

REPORT INFORMATION
  Report Type: 
  Country: None (occurrence: None)
  Receive Date: 20061031
  Receipt Date: 20061023
  Transmission Date: 20070319
  Serious: Yes (Hospitalization)
  Sender: FDA-Public Use
  Company Number: FABR-11671

PATIENT
  Age: 58 Year
  Sex: Male
  Weight: 87.9978 kg

DRUGS (4)
  1. FABRAZYME [Suspect]
     Indication: FABRY'S DISEASE
     Dosage: 82.7 MG Q2WKS IV
     Route: 042
     Dates: start: 20050818
  2. FABRAZYME [Suspect]
  3. ASPIRIN [Concomitant]
  4. COUMADIN [Concomitant]

REACTIONS (7)
  - AGNOSIA [None]
  - APHASIA [None]
  - INTERNATIONAL NORMALISED RATIO INCREASED [None]
  - MEMORY IMPAIRMENT [None]
  - MENTAL IMPAIRMENT [None]
  - TRANSIENT ISCHAEMIC ATTACK [None]
  - TREMOR [None]
